FAERS Safety Report 5305317-4 (Version None)
Quarter: 2007Q2

REPORT INFORMATION
  Report Type: 
  Country: None (occurrence: None)
  Receive Date: 20070424
  Receipt Date: 20070413
  Transmission Date: 20071010
  Serious: Yes (Other)
  Sender: FDA-Public Use
  Company Number: PHBS2007BR06571

PATIENT
  Age: 62 Year
  Sex: Female

DRUGS (2)
  1. ZOMETA [Suspect]
     Dosage: 4 MG, QMO
     Route: 065
     Dates: start: 20040601
  2. ANTIBIOTICS [Concomitant]

REACTIONS (10)
  - ABSCESS DRAINAGE [None]
  - BONE DISORDER [None]
  - DENTAL IMPLANTATION [None]
  - DENTAL TREATMENT [None]
  - ORAL PAIN [None]
  - OSTEONECROSIS [None]
  - PURULENT DISCHARGE [None]
  - SURGERY [None]
  - TOOTH EXTRACTION [None]
  - WOUND DEBRIDEMENT [None]
